FAERS Safety Report 15746398 (Version 4)
Quarter: 2019Q4

REPORT INFORMATION
  Report Type: Report from Study
  Country: US (occurrence: US)
  Receive Date: 20181220
  Receipt Date: 20191122
  Transmission Date: 20200122
  Serious: No
  Sender: FDA-Public Use
  Company Number: PHHY2018US188016

PATIENT
  Age: 59 Year
  Sex: Female
  Weight: 72 kg

DRUGS (1)
  1. GILENYA [Suspect]
     Active Substance: FINGOLIMOD HYDROCHLORIDE
     Indication: MULTIPLE SCLEROSIS
     Dosage: 0.5 MG, QD
     Route: 048
     Dates: start: 20170805

REACTIONS (8)
  - Pain in jaw [Unknown]
  - Dysaesthesia [Unknown]
  - Hypoaesthesia [Unknown]
  - Visual impairment [Recovered/Resolved]
  - Neck pain [Unknown]
  - Melanocytic naevus [Not Recovered/Not Resolved]
  - Muscular weakness [Unknown]
  - Lymphocyte count decreased [Unknown]

NARRATIVE: CASE EVENT DATE: 20180410
